FAERS Safety Report 23334893 (Version 1)
Quarter: 2023Q4

REPORT INFORMATION
  Report Type: Spontaneous
  Country: US (occurrence: US)
  Receive Date: 20231224
  Receipt Date: 20231224
  Transmission Date: 20240110
  Serious: No
  Sender: FDA-Public Use
  Company Number: US-ABBVIE-5546871

PATIENT
  Age: 32 Year
  Sex: Female

DRUGS (2)
  1. ORILISSA [Suspect]
     Active Substance: ELAGOLIX SODIUM
     Indication: Endometriosis
     Dosage: FORM STRENGTH: 150MG?LAST ADMIN DATE :2023
     Route: 048
     Dates: start: 202306
  2. ORILISSA [Suspect]
     Active Substance: ELAGOLIX SODIUM
     Indication: Endometriosis
     Dosage: FORM STRENGTH: 150MG?DOSE INCREASED?FIRST ADMIN DATE:2023
     Route: 048

REACTIONS (3)
  - Anxiety [Recovered/Resolved]
  - Irritability [Recovered/Resolved]
  - Mood altered [Recovered/Resolved]

NARRATIVE: CASE EVENT DATE: 20230601
